FAERS Safety Report 16526575 (Version 1)
Quarter: 2019Q3

REPORT INFORMATION
  Report Type: Report from Study
  Country: CA (occurrence: CA)
  Receive Date: 20190703
  Receipt Date: 20190703
  Transmission Date: 20191004
  Serious: Yes (Hospitalization)
  Sender: FDA-Public Use
  Company Number: CA-BIOGEN-2019BI00715018

PATIENT
  Age: 29 Year
  Sex: Male

DRUGS (2)
  1. TECFIDERA [Suspect]
     Active Substance: DIMETHYL FUMARATE
     Dosage: MAINTENANCE DOSE
     Route: 048
     Dates: start: 20190305
  2. TECFIDERA [Suspect]
     Active Substance: DIMETHYL FUMARATE
     Indication: MULTIPLE SCLEROSIS
     Dosage: 120MG DAILY X 2 WEEKS, 120MG BID X 2 WEEKS, 120MG IN AM 240MG IN PM X 2 WEEKS THEN 240MG BID
     Route: 048
     Dates: start: 20190305

REACTIONS (3)
  - Somnolence [Not Recovered/Not Resolved]
  - Hemianaesthesia [Recovered/Resolved]
  - Thermoanaesthesia [Not Recovered/Not Resolved]

NARRATIVE: CASE EVENT DATE: 20190307
